FAERS Safety Report 8268090-6 (Version None)
Quarter: 2012Q2

REPORT INFORMATION
  Report Type: 
  Country: None (occurrence: None)
  Receive Date: 20120409
  Receipt Date: 20120403
  Transmission Date: 20120825
  Serious: Yes (Other)
  Sender: FDA-Public Use
  Company Number: US-AMGEN-USASP2011026543

PATIENT
  Age: 60 Year
  Sex: Female

DRUGS (2)
  1. ENBREL [Suspect]
     Indication: RHEUMATOID ARTHRITIS
     Dosage: 25 MG, 2 TIMES/WK
     Dates: start: 20051001
  2. TREXALL [Concomitant]
     Dosage: 1 MG, UNK
     Dates: start: 20010101

REACTIONS (6)
  - HAND FRACTURE [None]
  - ACCIDENT AT HOME [None]
  - WRIST FRACTURE [None]
  - RHEUMATOID ARTHRITIS [None]
  - OSTEOPOROSIS [None]
  - INJECTION SITE PAIN [None]
